FAERS Safety Report 9152606 (Version 1)
Quarter: 2013Q1

REPORT INFORMATION
  Report Type: Spontaneous
  Country: US (occurrence: US)
  Receive Date: 20130308
  Receipt Date: 20130308
  Transmission Date: 20140127
  Serious: Yes (Hospitalization)
  Sender: FDA-Public Use
  Company Number: US-009507513-1303USA001840

PATIENT
  Sex: Male

DRUGS (14)
  1. SINGULAIR [Suspect]
  2. MARZULENE [Concomitant]
     Dosage: UNKNOWN
  3. MARZULENE [Concomitant]
     Dosage: UNKNOWN
  4. HOKUNALIN [Concomitant]
     Dosage: UNKNOWN
  5. HOKUNALIN [Concomitant]
     Dosage: UNKNOWN
  6. SEREVENT [Concomitant]
     Dosage: UNKNOWN
  7. SEREVENT [Concomitant]
     Dosage: UNKNOWN
  8. KIPRES [Concomitant]
     Dosage: UNKNOWN
  9. KIPRES [Concomitant]
     Dosage: UNKNOWN
  10. MUCODYNE [Concomitant]
     Dosage: UNKNOWN
  11. MUCODYNE [Concomitant]
     Dosage: UNKNOWN
  12. CLEANAL [Concomitant]
     Dosage: UNKNOWN
  13. CLEANAL [Concomitant]
     Dosage: UNKNOWN
  14. CLARITHROMYCIN [Concomitant]

REACTIONS (1)
  - Hepatic function abnormal [Unknown]
